FAERS Safety Report 10897772 (Version 2)
Quarter: 2015Q1

REPORT INFORMATION
  Report Type: Spontaneous
  Country: US (occurrence: US)
  Receive Date: 20150309
  Receipt Date: 20150309
  Transmission Date: 20150721
  Serious: Yes (Hospitalization, Other)
  Sender: FDA-Public Use
  Company Number: US-ACTAVIS-2015-04296

PATIENT
  Age: 31 Year
  Sex: Female

DRUGS (3)
  1. FENTANYL UNKNOWN STRENGTH (WATSON LABORATORIES) [Suspect]
     Active Substance: FENTANYL
     Indication: PAIN
     Dosage: UNK, UNKNOWN
     Route: 062
  2. KADIAN [Suspect]
     Active Substance: MORPHINE SULFATE
     Indication: PAIN
     Dosage: UNK, UNKNOWN
     Route: 065
  3. OPANA [Suspect]
     Active Substance: OXYMORPHONE HYDROCHLORIDE
     Indication: PAIN
     Dosage: 7.5 MG, UNKNOWN
     Route: 065
     Dates: start: 20150209

REACTIONS (6)
  - Cold sweat [Not Recovered/Not Resolved]
  - Hospitalisation [Unknown]
  - Abdominal discomfort [Not Recovered/Not Resolved]
  - Hyperhidrosis [Not Recovered/Not Resolved]
  - Drug withdrawal syndrome [Not Recovered/Not Resolved]
  - Drug effect decreased [Not Recovered/Not Resolved]

NARRATIVE: CASE EVENT DATE: 201502
